FAERS Safety Report 8844356 (Version 1)
Quarter: 2012Q4

REPORT INFORMATION
  Report Type: 
  Country: US (occurrence: US)
  Receive Date: 20121017
  Receipt Date: 20121017
  Transmission Date: 20130627
  Serious: Yes (Other)
  Sender: FDA-Public Use
  Company Number: US-NAPPMUNDI-USA-2012-0094350

PATIENT
  Age: 28 Year
  Sex: Male

DRUGS (3)
  1. OXYCONTIN (NDA 22-272) [Suspect]
     Indication: DRUG ABUSE
     Route: 065
  2. BENZODIAZEPINE [Suspect]
     Indication: DRUG ABUSE
     Route: 065
  3. CANNABIS [Suspect]
     Indication: SUBSTANCE ABUSE
     Route: 065

REACTIONS (9)
  - Substance abuse [Unknown]
  - Deafness [Unknown]
  - Mental status changes [Unknown]
  - Tachycardia [Unknown]
  - Renal impairment [Unknown]
  - Troponin increased [Unknown]
  - Transaminases increased [Unknown]
  - Drug ineffective [None]
  - Toxicity to various agents [None]
